FAERS Safety Report 7306196-6 (Version None)
Quarter: 2011Q1

REPORT INFORMATION
  Report Type: 
  Country: None (occurrence: None)
  Receive Date: 20110222
  Receipt Date: 20110209
  Transmission Date: 20110831
  Serious: Yes (Other)
  Sender: FDA-Public Use
  Company Number: PHHY2011GB10449

PATIENT
  Age: 66 Year
  Sex: Male
  Weight: 72.3 kg

DRUGS (7)
  1. ZOPICLONE [Concomitant]
     Indication: INSOMNIA
     Dosage: 7.5 MG, UNK
     Dates: start: 20070101
  2. ZOPICLONE [Concomitant]
     Dosage: 15 MG, UNK
     Route: 048
  3. NOVORAPID [Concomitant]
     Dosage: 22 IU, UNK
  4. CITALOPRAM [Suspect]
     Indication: DEPRESSION
     Dosage: 20 MG, UNK
     Route: 048
     Dates: start: 20100924, end: 20110117
  5. LOPERAMIDE [Concomitant]
     Dosage: 2 MG, UNK
  6. METFORMIN [Concomitant]
     Dosage: 1 G, UNK
  7. INSULIN GLARGINE [Concomitant]
     Dosage: 44 IU, UNK

REACTIONS (1)
  - SOMNAMBULISM [None]
